FAERS Safety Report 7445945-3 (Version None)
Quarter: 2011Q2

REPORT INFORMATION
  Report Type: 
  Country: None (occurrence: None)
  Receive Date: 20110420
  Receipt Date: 20110301
  Transmission Date: 20111010
  Serious: No
  Sender: FDA-Public Use
  Company Number: 2011-00080

PATIENT
  Age: 72 Year
  Sex: Female
  Weight: 81.6475 kg

DRUGS (1)
  1. ZICAM ALLERGY RELIEF GEL SWABS [Suspect]
     Dosage: QD X 8 DAYS
     Dates: start: 20110215, end: 20110222

REACTIONS (1)
  - ANOSMIA [None]
